FAERS Safety Report 9856875 (Version 1)
Quarter: 2014Q1

REPORT INFORMATION
  Report Type: Spontaneous
  Country: IT (occurrence: IT)
  Receive Date: 20140130
  Receipt Date: 20140130
  Transmission Date: 20141002
  Serious: Yes (Hospitalization, Congenital Anomaly, Other)
  Sender: FDA-Public Use
  Company Number: IT-BAYER-2014-013617

PATIENT
  Sex: Female

DRUGS (12)
  1. NIFEDIPINE [Suspect]
     Route: 064
  2. NIFEDIPINE [Suspect]
     Route: 064
  3. ACETYLSALICYLIC ACID({=100 MG) [Suspect]
     Indication: PROPHYLAXIS
     Route: 064
  4. ACETYLSALICYLIC ACID({=100 MG) [Suspect]
     Indication: PROPHYLAXIS
     Route: 064
  5. INSULIN [Concomitant]
     Indication: TYPE 1 DIABETES MELLITUS
     Route: 064
  6. INSULIN [Concomitant]
     Indication: TYPE 1 DIABETES MELLITUS
     Route: 064
  7. METHYLDOPA [Concomitant]
     Route: 064
  8. METHYLDOPA [Concomitant]
     Route: 064
  9. LEVOTHYROXINE [Concomitant]
     Route: 064
  10. LEVOTHYROXINE [Concomitant]
     Route: 064
  11. AMINO ACID [Concomitant]
     Route: 064
  12. AMINO ACID [Concomitant]
     Route: 064

REACTIONS (4)
  - Premature baby [Recovered/Resolved]
  - Low birth weight baby [Recovered/Resolved]
  - Spine malformation [None]
  - Foetal exposure timing unspecified [None]
